FAERS Safety Report 11247949 (Version 1)
Quarter: 2015Q3

REPORT INFORMATION
  Report Type: Spontaneous
  Country: GB (occurrence: None)
  Receive Date: 20150706
  Receipt Date: 20150706
  Transmission Date: 20151125
  Serious: Yes (Hospitalization)
  Sender: FDA-Public Use
  Company Number: 2015-ES-000001

PATIENT
  Age: 57 Year
  Sex: Female
  Weight: 74.5 kg

DRUGS (9)
  1. RAMIPRIL. [Concomitant]
     Active Substance: RAMIPRIL
  2. PHENELZINE SULFATE (PHENELZINE) [Suspect]
     Active Substance: PHENELZINE
     Route: 048
  3. ASPIRIN. [Concomitant]
     Active Substance: ASPIRIN
  4. MORPHINE SULFATE ORAL SOLUTION [Suspect]
     Active Substance: MORPHINE SULFATE
     Indication: PAIN
     Dosage: EVERY 4 TO 6 HOURS
     Route: 048
  5. CLOPIDOGREL [Concomitant]
     Active Substance: CLOPIDOGREL BISULFATE
  6. OMEPRAZOLE. [Concomitant]
     Active Substance: OMEPRAZOLE
  7. GABAPENTIN. [Concomitant]
     Active Substance: GABAPENTIN
  8. ATORVASTATIN [Concomitant]
     Active Substance: ATORVASTATIN
  9. BISOPROLOL [Concomitant]
     Active Substance: BISOPROLOL

REACTIONS (11)
  - Photophobia [None]
  - Headache [None]
  - Nausea [None]
  - Drug interaction [None]
  - Restlessness [None]
  - Dizziness [None]
  - Hallucination, visual [None]
  - Musculoskeletal stiffness [None]
  - Body temperature increased [None]
  - Clonus [None]
  - Hyperhidrosis [None]
